FAERS Safety Report 8923027 (Version 1)
Quarter: 2012Q4

REPORT INFORMATION
  Report Type: 
  Country: NL (occurrence: NL)
  Receive Date: 20121124
  Receipt Date: 20121124
  Transmission Date: 20130627
  Serious: Yes (Death)
  Sender: FDA-Public Use
  Company Number: PHHY2012NL106980

PATIENT
  Sex: Female

DRUGS (3)
  1. ZOMETA [Suspect]
     Indication: BRONCHIAL CARCINOMA
     Dosage: 4 mg/ 100 ml Once per 21 days
     Dates: start: 20120626
  2. ZOMETA [Suspect]
     Dosage: 4 mg/ 100 ml Once per 21 days
     Dates: start: 20121023
  3. ZOMETA [Suspect]
     Dosage: 4 mg/ 100 ml Once per 21 days
     Dates: start: 20121113

REACTIONS (1)
  - Death [Fatal]
